FAERS Safety Report 22898544 (Version 6)
Quarter: 2025Q3

REPORT INFORMATION
  Report Type: Report from Study
  Country: CA (occurrence: CA)
  Receive Date: 20230904
  Receipt Date: 20250710
  Transmission Date: 20251021
  Serious: Yes (Other)
  Sender: AMGEN
  Company Number: CA-AMGEN-CANSL2021205556

PATIENT
  Age: 58 Year
  Sex: Male
  Weight: 96 kg

DRUGS (6)
  1. AVSOLA [Suspect]
     Active Substance: INFLIXIMAB-AXXQ
     Indication: Colitis ulcerative
     Dosage: 5 MILLIGRAM/KILOGRAM, Q7WK
     Route: 065
     Dates: start: 20220114
  2. AVSOLA [Suspect]
     Active Substance: INFLIXIMAB-AXXQ
     Dosage: 5 MILLIGRAM/KILOGRAM, Q7WK
     Route: 065
  3. AVSOLA [Suspect]
     Active Substance: INFLIXIMAB-AXXQ
     Dosage: 5 MILLIGRAM/KILOGRAM, Q7WK
     Route: 065
  4. AVSOLA [Suspect]
     Active Substance: INFLIXIMAB-AXXQ
     Dosage: 5 MILLIGRAM/KILOGRAM, Q7WK
     Route: 065
  5. AZATHIOPRINE [Concomitant]
     Active Substance: AZATHIOPRINE
  6. CALCIUM [Concomitant]
     Active Substance: CALCIUM

REACTIONS (4)
  - Appendiceal abscess [Unknown]
  - Endodontic procedure [Unknown]
  - COVID-19 [Recovered/Resolved]
  - Off label use [Unknown]

NARRATIVE: CASE EVENT DATE: 20220114
